FAERS Safety Report 10166351 (Version 57)
Quarter: 2019Q3

REPORT INFORMATION
  Report Type: Report from Study
  Country: CA (occurrence: CA)
  Receive Date: 20140512
  Receipt Date: 20190717
  Transmission Date: 20191004
  Serious: Yes (Other)
  Sender: FDA-Public Use
  Company Number: CA-ROCHE-1339281

PATIENT
  Age: 67 Year
  Sex: Female
  Weight: 70.7 kg

DRUGS (16)
  1. ACTEMRA [Suspect]
     Active Substance: TOCILIZUMAB
     Indication: OFF LABEL USE
     Route: 042
     Dates: start: 20140102
  2. TYLENOL WITH CODEINE [Concomitant]
     Active Substance: ACETAMINOPHEN\CODEINE PHOSPHATE
     Indication: OFF LABEL USE
     Dosage: AS REQUIRED
     Route: 065
  3. AIROMIR [SALBUTAMOL] [Concomitant]
     Active Substance: ALBUTEROL SULFATE
     Indication: OFF LABEL USE
     Dosage: AS REQUIRED
     Route: 065
  4. FOSAMAX [Concomitant]
     Active Substance: ALENDRONATE SODIUM
     Indication: OFF LABEL USE
     Dosage: AS REQUIRED
     Route: 065
  5. PREDNISONE. [Concomitant]
     Active Substance: PREDNISONE
     Indication: OFF LABEL USE
  6. PARIET [Concomitant]
     Active Substance: RABEPRAZOLE SODIUM
     Indication: OFF LABEL USE
  7. ACTEMRA [Suspect]
     Active Substance: TOCILIZUMAB
     Route: 042
     Dates: start: 20140805
  8. ACTEMRA [Suspect]
     Active Substance: TOCILIZUMAB
     Route: 042
     Dates: start: 20150219
  9. ACTEMRA [Suspect]
     Active Substance: TOCILIZUMAB
     Indication: OFF LABEL USE
     Dosage: ONGOING
     Route: 058
     Dates: start: 2019
  10. ACTEMRA [Suspect]
     Active Substance: TOCILIZUMAB
     Indication: RHEUMATOID ARTHRITIS
     Route: 058
     Dates: start: 20180628
  11. ACTEMRA [Suspect]
     Active Substance: TOCILIZUMAB
     Route: 042
     Dates: start: 20141223
  12. ACTEMRA [Suspect]
     Active Substance: TOCILIZUMAB
     Route: 042
     Dates: start: 20150319, end: 20180501
  13. AZATHIOPRINE. [Concomitant]
     Active Substance: AZATHIOPRINE
     Indication: OFF LABEL USE
  14. ACTEMRA [Suspect]
     Active Substance: TOCILIZUMAB
     Indication: RHEUMATOID ARTHRITIS
     Route: 042
     Dates: start: 20131206
  15. FLOVENT [Concomitant]
     Active Substance: FLUTICASONE PROPIONATE
     Indication: OFF LABEL USE
     Dosage: AS REQUIRED
     Route: 065
  16. ATENOLOL. [Concomitant]
     Active Substance: ATENOLOL
     Indication: OFF LABEL USE

REACTIONS (48)
  - Cyst [Unknown]
  - Cystitis [Unknown]
  - Blood pressure diastolic decreased [Unknown]
  - Abdominal discomfort [Unknown]
  - Blood pressure diastolic abnormal [Unknown]
  - Fatigue [Not Recovered/Not Resolved]
  - Arthralgia [Unknown]
  - Solar dermatitis [Unknown]
  - Hypoacusis [Not Recovered/Not Resolved]
  - Nasal congestion [Not Recovered/Not Resolved]
  - Urinary tract infection [Recovered/Resolved]
  - Nasopharyngitis [Unknown]
  - Epistaxis [Unknown]
  - Eye pruritus [Not Recovered/Not Resolved]
  - Eye infection bacterial [Not Recovered/Not Resolved]
  - Abdominal discomfort [Unknown]
  - Off label use [Unknown]
  - Blood pressure fluctuation [Unknown]
  - Arthralgia [Not Recovered/Not Resolved]
  - Peripheral swelling [Unknown]
  - Pain in extremity [Not Recovered/Not Resolved]
  - Dental caries [Unknown]
  - Infected cyst [Recovering/Resolving]
  - Pharyngitis streptococcal [Unknown]
  - Infusion related reaction [Unknown]
  - Glossodynia [Not Recovered/Not Resolved]
  - Gingival pain [Unknown]
  - Abdominal pain upper [Recovered/Resolved]
  - Dry skin [Unknown]
  - Cough [Recovered/Resolved]
  - Blood pressure increased [Unknown]
  - Musculoskeletal pain [Not Recovered/Not Resolved]
  - Ocular hyperaemia [Unknown]
  - Varicose vein [Not Recovered/Not Resolved]
  - Feeling cold [Not Recovered/Not Resolved]
  - Intentional product use issue [Unknown]
  - Dyspnoea [Unknown]
  - Cyst [Recovered/Resolved]
  - Tooth disorder [Unknown]
  - Tooth disorder [Recovered/Resolved]
  - Diarrhoea [Unknown]
  - Oral herpes [Recovered/Resolved]
  - Nasal dryness [Not Recovered/Not Resolved]
  - Fungal infection [Not Recovered/Not Resolved]
  - Ocular hyperaemia [Not Recovered/Not Resolved]
  - Constipation [Not Recovered/Not Resolved]
  - Pain [Not Recovered/Not Resolved]
  - Dry eye [Unknown]

NARRATIVE: CASE EVENT DATE: 201401
